FAERS Safety Report 21763900 (Version 4)
Quarter: 2023Q1

REPORT INFORMATION
  Report Type: Spontaneous
  Country: US (occurrence: US)
  Receive Date: 20221222
  Receipt Date: 20230106
  Transmission Date: 20230418
  Serious: No
  Sender: FDA-Public Use
  Company Number: US-AMGEN-USASP2022215159

PATIENT
  Age: 65 Year
  Sex: Female

DRUGS (3)
  1. NEULASTA [Suspect]
     Active Substance: PEGFILGRASTIM
     Indication: Neutropenia
     Dosage: UNK UNK, Q3WK (DOSE NUMBER 03)
     Route: 058
     Dates: start: 20221205
  2. NEULASTA [Suspect]
     Active Substance: PEGFILGRASTIM
     Dosage: UNK UNK, Q3WK, (DOSE NUMBER 03)
     Route: 058
  3. DOCETAXEL [Concomitant]
     Active Substance: DOCETAXEL
     Dosage: UNK
     Route: 058

REACTIONS (1)
  - Device adhesion issue [Recovered/Resolved]

NARRATIVE: CASE EVENT DATE: 20221201
